FAERS Safety Report 7318892-5 (Version None)
Quarter: 2011Q1

REPORT INFORMATION
  Report Type: 
  Country: None (occurrence: None)
  Receive Date: 20110228
  Receipt Date: 20110131
  Transmission Date: 20110831
  Serious: Yes (Other)
  Sender: FDA-Public Use
  Company Number: US-MYLANLABS-2011S1000813

PATIENT
  Age: 30 Year
  Sex: Female
  Weight: 131.54 kg

DRUGS (2)
  1. LAMOTRIGINE [Suspect]
     Indication: CONVULSION
     Route: 048
     Dates: start: 20090801, end: 20110101
  2. LAMOTRIGINE [Suspect]
     Route: 048
     Dates: start: 20090801, end: 20110101

REACTIONS (1)
  - CONVULSION [None]
